FAERS Safety Report 10211116 (Version 1)
Quarter: 2014Q2

REPORT INFORMATION
  Report Type: Spontaneous
  Country: US (occurrence: None)
  Receive Date: 20140530
  Receipt Date: 20140530
  Transmission Date: 20141212
  Serious: Yes (Other)
  Sender: FDA-Public Use
  Company Number: None

PATIENT
  Age: 78 Year
  Sex: Female
  Weight: 53.52 kg

DRUGS (2)
  1. ANASTROZOLE [Suspect]
     Indication: BREAST CANCER
     Route: 048
     Dates: start: 20140217, end: 20140317
  2. ANASTROZOLE [Suspect]
     Indication: PROPHYLAXIS
     Route: 048
     Dates: start: 20140217, end: 20140317

REACTIONS (8)
  - Vision blurred [None]
  - Tinnitus [None]
  - Urticaria [None]
  - Eye swelling [None]
  - Lip swelling [None]
  - Swollen tongue [None]
  - Herpes zoster [None]
  - Hypersensitivity [None]
